FAERS Safety Report 8808070 (Version 1)
Quarter: 2012Q4

REPORT INFORMATION
  Report Type: 
  Country: CN (occurrence: CN)
  Receive Date: 20120926
  Receipt Date: 20120926
  Transmission Date: 20130627
  Serious: Yes (Other)
  Sender: FDA-Public Use
  Company Number: CN-ABBOTT-12P-035-0984027-00

PATIENT
  Age: 57 Year
  Sex: Female
  Weight: 57 kg

DRUGS (2)
  1. CLARITHROMYCIN [Suspect]
     Indication: GASTRITIS
     Route: 048
     Dates: start: 20090314, end: 20090314
  2. AMOXICILLIN [Suspect]
     Indication: GASTRITIS

REACTIONS (5)
  - Rhinitis [Recovering/Resolving]
  - Pruritus generalised [Recovering/Resolving]
  - Swelling face [Recovering/Resolving]
  - Erythema [Recovering/Resolving]
  - Rash [Recovering/Resolving]
